FAERS Safety Report 7285404-4 (Version None)
Quarter: 2011Q1

REPORT INFORMATION
  Report Type: 
  Country: None (occurrence: None)
  Receive Date: 20110210
  Receipt Date: 20110202
  Transmission Date: 20110831
  Serious: Yes (Other)
  Sender: FDA-Public Use
  Company Number: US-BAXTER-2011BH002798

PATIENT
  Age: 79 Year
  Sex: Male

DRUGS (5)
  1. PIPERACILLIN AND TAZOBACTAM [Interacting]
     Indication: DIVERTICULITIS
     Route: 042
     Dates: start: 20090101
  2. GLIMEPIRIDE [Interacting]
     Indication: PRODUCT USED FOR UNKNOWN INDICATION
     Route: 048
  3. METRONIDAZOLE IN PLASTIC CONTAINER [Interacting]
     Route: 048
     Dates: start: 20090101
  4. METRONIDAZOLE IN PLASTIC CONTAINER [Suspect]
     Indication: DIVERTICULITIS
     Route: 042
     Dates: start: 20090101
  5. CIPROFLOXACIN HYDROCHLORIDE [Interacting]
     Indication: DIVERTICULITIS
     Route: 048
     Dates: start: 20090101

REACTIONS (2)
  - DRUG INTERACTION [None]
  - HYPOGLYCAEMIA [None]
